FAERS Safety Report 5922532-7 (Version None)
Quarter: 2008Q4

REPORT INFORMATION
  Report Type: 
  Country: None (occurrence: None)
  Receive Date: 20081017
  Receipt Date: 20081008
  Transmission Date: 20090506
  Serious: Yes (Hospitalization, Other)
  Sender: FDA-Public Use
  Company Number: PHHY2008BR15016

PATIENT
  Sex: Female

DRUGS (45)
  1. SANDIMMUNE [Suspect]
     Indication: PROPHYLAXIS AGAINST GRAFT VERSUS HOST DISEASE
     Dosage: 95 MG, BID
     Route: 042
     Dates: start: 20080515, end: 20080616
  2. MEROPENEM [Concomitant]
     Dosage: UNK
     Dates: start: 20080523, end: 20080609
  3. ACYCLOVIR [Concomitant]
     Dosage: UNK
     Dates: start: 20080514, end: 20080516
  4. ACYCLOVIR [Concomitant]
     Dosage: UNK
     Dates: start: 20080609, end: 20080601
  5. ZOVIRAX [Concomitant]
     Dosage: UNK
     Dates: end: 20080601
  6. OMEPRAZOLE [Concomitant]
     Dosage: UNK
     Dates: start: 20080521, end: 20080616
  7. CIPROFLOXACIN [Concomitant]
     Dosage: UNK
     Dates: start: 20080604, end: 20080612
  8. ONDANSETRON [Concomitant]
     Dosage: UNK
     Dates: start: 20080508, end: 20080616
  9. VANCOMYCIN HYDROCHLORIDE [Concomitant]
     Dosage: UNK
     Dates: start: 20080521, end: 20080522
  10. VANCOMYCIN HYDROCHLORIDE [Concomitant]
     Dosage: UNK
     Dates: start: 20080603, end: 20080611
  11. GRANULOKINE [Concomitant]
     Dosage: UNK
     Dates: start: 20080604, end: 20080612
  12. COMPLEX B FORTE [Concomitant]
  13. HYDROCORTISONE 10MG TAB [Concomitant]
     Dosage: UNK
     Dates: start: 20080516
  14. HYDROCORTISONE 10MG TAB [Concomitant]
     Dosage: UNK
     Dates: start: 20080605, end: 20080615
  15. ALBUMIN (HUMAN) [Concomitant]
     Dosage: UNK
     Dates: start: 20080605, end: 20080605
  16. DIMETICONE [Concomitant]
     Dosage: UNK
     Dates: start: 20080608
  17. AMLODIPINE [Concomitant]
     Dosage: UNK
     Dates: start: 20080612, end: 20080615
  18. BACTRIM [Concomitant]
     Dosage: UNK
     Dates: start: 20080508, end: 20080511
  19. BACTRIM [Concomitant]
     Dosage: UNK
     Dates: start: 20080513, end: 20080513
  20. BUSULFAN [Concomitant]
     Dosage: UNK
     Dates: start: 20080509, end: 20080512
  21. CANCIDAS [Concomitant]
     Dosage: UNK
     Dates: start: 20080526, end: 20080612
  22. CAPOTEN [Concomitant]
     Dosage: UNK
     Dates: start: 20080518, end: 20080615
  23. CEFEPIME [Concomitant]
     Dosage: UNK
     Dates: start: 20080519, end: 20080522
  24. CYCLOPHOSPHAMIDE [Concomitant]
     Dosage: UNK
     Dates: start: 20080513, end: 20080514
  25. DIAZEPAM [Concomitant]
     Dosage: UNK
     Dates: start: 20080508, end: 20080512
  26. DIGESAN [Concomitant]
     Dosage: UNK
     Dates: start: 20080513, end: 20080514
  27. DIGESAN [Concomitant]
     Dosage: UNK
     Dates: start: 20080604, end: 20080613
  28. DIPYRONE TAB [Concomitant]
     Dosage: UNK
     Dates: start: 20080519, end: 20080606
  29. FLUCONAZOLE [Concomitant]
     Dosage: UNK
     Dates: start: 20080515, end: 20080526
  30. FLUMAZENIL [Concomitant]
     Dosage: UNK
     Dates: start: 20080604, end: 20080604
  31. HYOSCINE [Concomitant]
     Dosage: UNK
     Dates: start: 20080516, end: 20080610
  32. LASIX [Concomitant]
     Dosage: UNK
     Dates: start: 20080513, end: 20080531
  33. LEUCOVORIN CALCIUM [Concomitant]
     Dosage: UNK
     Dates: start: 20080518, end: 20080524
  34. MANNITOL [Concomitant]
     Dosage: UNK
     Dates: start: 20080516, end: 20080516
  35. MESNA [Concomitant]
     Dosage: UNK
     Dates: start: 20080514, end: 20080515
  36. MORPHINE [Concomitant]
     Dosage: UNK
     Dates: start: 20080517, end: 20080530
  37. METHOTREXATE [Concomitant]
     Dosage: UNK
     Dates: start: 20080519
  38. PROMETHAZINE [Concomitant]
     Dosage: UNK
     Dates: start: 20080516, end: 20080516
  39. TRAMAL [Concomitant]
     Dosage: UNK
     Dates: start: 20080605, end: 20080606
  40. TYLENOL (CAPLET) [Concomitant]
     Dosage: UNK
     Dates: start: 20080516
  41. ACETAMINOPHEN W/ CODEINE [Concomitant]
     Dosage: UNK
     Dates: start: 20080608
  42. URSACOL [Concomitant]
     Dosage: UNK
     Dates: start: 20080510, end: 20080613
  43. ZOLBEN [Concomitant]
     Dosage: UNK
     Dates: start: 20080510, end: 20080615
  44. ZOLTEC [Concomitant]
     Dosage: UNK
     Dates: start: 20080515, end: 20080527
  45. TPN [Concomitant]
     Dosage: UNK
     Dates: start: 20080521, end: 20080611

REACTIONS (27)
  - ABDOMINAL PAIN [None]
  - ABDOMINAL PAIN UPPER [None]
  - BILIRUBIN CONJUGATED INCREASED [None]
  - BRADYCARDIA [None]
  - COMA [None]
  - CONFUSIONAL STATE [None]
  - CONJUNCTIVAL HAEMORRHAGE [None]
  - COUGH [None]
  - DIARRHOEA [None]
  - DISORIENTATION [None]
  - FATIGUE [None]
  - HEADACHE [None]
  - HEPATOMEGALY [None]
  - HYPERTENSION [None]
  - INCOHERENT [None]
  - LASER THERAPY [None]
  - LUNG DISORDER [None]
  - NEUROTOXICITY [None]
  - ORAL DISORDER [None]
  - OROPHARYNGEAL PAIN [None]
  - PYREXIA [None]
  - RETINAL OEDEMA [None]
  - RHINITIS [None]
  - SOMNOLENCE [None]
  - SOPOR [None]
  - UNRESPONSIVE TO STIMULI [None]
  - WEIGHT INCREASED [None]
